FAERS Safety Report 9032959 (Version 1)
Quarter: 2013Q1

REPORT INFORMATION
  Report Type: Report from Study
  Country: CA (occurrence: CA)
  Receive Date: 20130128
  Receipt Date: 20130128
  Transmission Date: 20140127
  Serious: Yes (Other)
  Sender: FDA-Public Use
  Company Number: CA-JNJFOC-20130109801

PATIENT
  Age: 38 Year
  Sex: Female
  Weight: 78 kg

DRUGS (10)
  1. REMICADE [Suspect]
     Indication: ANKYLOSING SPONDYLITIS
     Route: 042
  2. WARFARIN [Concomitant]
     Route: 065
  3. PREDNISONE [Concomitant]
     Route: 065
  4. PARIET [Concomitant]
     Route: 065
  5. AZATHIOPRINE [Concomitant]
     Route: 065
  6. ALL OTHER THERAPEUTIC PRODUCTS [Concomitant]
     Route: 065
  7. IMODIUM [Concomitant]
     Route: 065
  8. FOSAMAX [Concomitant]
     Route: 065
  9. VITAMIN D [Concomitant]
     Route: 065
  10. CALCIUM [Concomitant]
     Route: 065

REACTIONS (2)
  - Liver disorder [Unknown]
  - Migraine [Unknown]
